FAERS Safety Report 6222222-X (Version None)
Quarter: 2009Q2

REPORT INFORMATION
  Report Type: 
  Country: None (occurrence: None)
  Receive Date: 20090611
  Receipt Date: 20090608
  Transmission Date: 20091009
  Serious: Yes (Death, Hospitalization, Disabling, Other)
  Sender: FDA-Public Use
  Company Number: PHHY2009BR11703

PATIENT
  Age: 90 Year
  Sex: Female

DRUGS (3)
  1. DIOVAN HCT [Suspect]
     Indication: HYPERTENSION
     Dosage: 1 TABLET DAILY
     Route: 048
     Dates: start: 20080101
  2. HIDANTAL [Concomitant]
     Indication: CONVULSION
     Dosage: 1 TABLET DAILY
     Route: 048
     Dates: start: 20030101
  3. HIDANTAL [Concomitant]
     Dosage: 2 TABLETS DAILY
     Route: 048

REACTIONS (7)
  - AGGRESSION [None]
  - AGITATION [None]
  - ANOREXIA [None]
  - ASTHENIA [None]
  - BEDRIDDEN [None]
  - DEMENTIA ALZHEIMER'S TYPE [None]
  - SEPTIC SHOCK [None]
